FAERS Safety Report 24920578 (Version 1)
Quarter: 2025Q1

REPORT INFORMATION
  Report Type: Report from Study
  Country: US (occurrence: US)
  Receive Date: 20250204
  Receipt Date: 20250204
  Transmission Date: 20250408
  Serious: No
  Sender: EXELIXIS
  Company Number: US-EXELIXIS-CABO-24074256

PATIENT
  Age: 61 Year
  Sex: Female

DRUGS (2)
  1. CABOMETYX [Suspect]
     Active Substance: CABOZANTINIB S-MALATE
     Indication: Malignant respiratory tract neoplasm
     Dosage: 20 MG, QD
     Route: 048
     Dates: start: 202312
  2. CABOMETYX [Suspect]
     Active Substance: CABOZANTINIB S-MALATE
     Indication: Metastases to bone
     Dosage: 10 MG, QD (CUTTING THE 20 MG PILLS IN HALF)
     Route: 048
     Dates: start: 20240223

REACTIONS (5)
  - Tongue dry [Recovering/Resolving]
  - Stomatitis [Recovering/Resolving]
  - Wrong technique in product usage process [Unknown]
  - Product prescribing issue [Unknown]
  - Off label use [Unknown]

NARRATIVE: CASE EVENT DATE: 20240223
